FAERS Safety Report 9099215 (Version 1)
Quarter: 2013Q1

REPORT INFORMATION
  Report Type: Spontaneous
  Country: US (occurrence: US)
  Receive Date: 20130214
  Receipt Date: 20130214
  Transmission Date: 20140127
  Serious: No
  Sender: FDA-Public Use
  Company Number: US-COVIDIEN/TYCO HEALTHCARE/MALLINCKRODT-T201300097

PATIENT
  Sex: Female
  Weight: 77.1 kg

DRUGS (10)
  1. FENTANYL TRANSDERMAL SYSTEM [Suspect]
     Indication: BACK PAIN
     Dosage: 50 MCG/HR Q 48 HRS
     Route: 062
     Dates: start: 2011
  2. FENTANYL TRANSDERMAL SYSTEM [Suspect]
     Dosage: 50 MCG/HR Q 72 HRS
     Route: 062
     Dates: start: 2011, end: 2011
  3. FENTANYL TRANSDERMAL SYSTEM [Suspect]
     Dosage: 25 MCG/HR Q 72 HRS
     Route: 062
     Dates: start: 201103, end: 2011
  4. GABAPENTIN [Concomitant]
     Indication: BACK PAIN
     Dosage: UNK
  5. CYMBALTA [Concomitant]
     Indication: FIBROMYALGIA
     Dosage: UNK
  6. SYNTHROID [Concomitant]
     Indication: THYROID DISORDER
     Dosage: UNK
  7. VYTORIN [Concomitant]
     Indication: BLOOD CHOLESTEROL INCREASED
     Dosage: UNK
  8. SINGULAIR [Concomitant]
     Indication: HYPERSENSITIVITY
     Dosage: UNK
  9. ALLEGRA [Concomitant]
     Indication: HYPERSENSITIVITY
     Dosage: UNK
  10. FLONASE [Concomitant]
     Indication: HYPERSENSITIVITY
     Dosage: UNK

REACTIONS (2)
  - Drug screen negative [Unknown]
  - Drug effect decreased [Not Recovered/Not Resolved]
